FAERS Safety Report 5628633-5 (Version None)
Quarter: 2008Q1

REPORT INFORMATION
  Report Type: 
  Country: None (occurrence: None)
  Receive Date: 20080214
  Receipt Date: 20080214
  Transmission Date: 20080703
  Serious: Yes (Hospitalization)
  Sender: FDA-Public Use
  Company Number: None

PATIENT
  Age: 83 Year
  Sex: Male

DRUGS (1)
  1. WARFARIN SODIUM [Suspect]
     Dosage: 5MG EVERY DAY PO
     Route: 048
     Dates: start: 20071221, end: 20080102

REACTIONS (2)
  - HAEMATOCHEZIA [None]
  - INTERNATIONAL NORMALISED RATIO INCREASED [None]
